FAERS Safety Report 5286923-2 (Version None)
Quarter: 2007Q2

REPORT INFORMATION
  Report Type: 
  Country: None (occurrence: None)
  Receive Date: 20070329
  Receipt Date: 20070323
  Transmission Date: 20071010
  Serious: Yes (Hospitalization)
  Sender: FDA-Public Use
  Company Number: FRP07000291

PATIENT
  Age: 71 Year
  Sex: Male

DRUGS (8)
  1. ACTONEL [Suspect]
     Indication: OSTEOPOROSIS
     Dosage: 35 MG, 1/WEEK; ORAL
     Route: 048
     Dates: start: 20070215, end: 20070309
  2. NEXIUM [Suspect]
     Indication: DRUG USE FOR UNKNOWN INDICATION
     Dosage: ORAL
     Route: 048
     Dates: start: 20070114, end: 20070308
  3. CORDARONE [Concomitant]
  4. CACIT D3 (CALCIUM CARBONATE) [Concomitant]
  5. COLECALCIFEROL [Concomitant]
  6. PREVISCAN (FLUINDIONE) TABLET [Concomitant]
  7. XATRAL /.00975301/(ALFUZOSIN) [Concomitant]
  8. STABLON /00956301/(IANEPTINE) [Concomitant]

REACTIONS (1)
  - AGRANULOCYTOSIS [None]
